FAERS Safety Report 15384481 (Version 7)
Quarter: 2018Q4

REPORT INFORMATION
  Report Type: Spontaneous
  Country: PL (occurrence: PL)
  Receive Date: 20180914
  Receipt Date: 20181121
  Transmission Date: 20190204
  Serious: Yes (Hospitalization)
  Sender: FDA-Public Use
  Company Number: PL-009507513-1809POL003027

PATIENT
  Age: 10 Year
  Sex: Female

DRUGS (5)
  1. AZITHROMYCIN ANHYDROUS. [Suspect]
     Active Substance: AZITHROMYCIN ANHYDROUS
     Indication: ACUTE HAEMORRHAGIC OEDEMA OF INFANCY
     Dosage: UNK
     Route: 048
     Dates: start: 201512
  2. BETAMETHASONE DIPROPIONATE (+) GENTAMICIN SULFATE [Suspect]
     Active Substance: BETAMETHASONE DIPROPIONATE\GENTAMICIN SULFATE
     Indication: ACUTE HAEMORRHAGIC OEDEMA OF INFANCY
     Dosage: UNK
     Route: 061
     Dates: start: 201512
  3. CLOTRIMAZOLE (+) BETAMETHASONE DIPROPIONATE [Suspect]
     Active Substance: BETAMETHASONE DIPROPIONATE\CLOTRIMAZOLE
     Indication: ACUTE HAEMORRHAGIC OEDEMA OF INFANCY
     Dosage: UNK
     Route: 061
     Dates: start: 201512
  4. BETAMETHASONE DIPROPIONATE (+) CLOTRIMAZOLE (+) GENTAMICIN SULFATE [Suspect]
     Active Substance: BETAMETHASONE DIPROPIONATE\CLOTRIMAZOLE\GENTAMICIN SULFATE
     Indication: ACUTE HAEMORRHAGIC OEDEMA OF INFANCY
     Dosage: UNK
     Route: 061
     Dates: start: 201512
  5. BETAMETHASONE DIPROPIONATE. [Suspect]
     Active Substance: BETAMETHASONE DIPROPIONATE
     Indication: ACUTE HAEMORRHAGIC OEDEMA OF INFANCY
     Dosage: UNK
     Route: 061
     Dates: start: 201512

REACTIONS (1)
  - Drug ineffective [Unknown]

NARRATIVE: CASE EVENT DATE: 201512
